FAERS Safety Report 7401026-6 (Version None)
Quarter: 2011Q2

REPORT INFORMATION
  Report Type: 
  Country: None (occurrence: None)
  Receive Date: 20110407
  Receipt Date: 20110404
  Transmission Date: 20111010
  Serious: Yes (Hospitalization, Congenital Anomaly, Other)
  Sender: FDA-Public Use
  Company Number: US-PFIZER INC-2010128154

PATIENT
  Sex: Female
  Weight: 3 kg

DRUGS (4)
  1. KEFLEX [Concomitant]
     Indication: UPPER RESPIRATORY TRACT INFECTION
     Dosage: 500 MG, TWO CAPSULE
     Route: 064
     Dates: start: 20060817
  2. PRENATAL VITAMINS [Concomitant]
     Dosage: UNK
  3. ZOLOFT [Suspect]
     Dosage: 50 MG, 1X/DAY
     Route: 064
     Dates: start: 20051011
  4. ACETAMINOPHEN [Concomitant]
     Indication: ABDOMINAL PAIN LOWER
     Dosage: UNK
     Route: 064
     Dates: start: 20060602

REACTIONS (10)
  - EUSTACHIAN TUBE DYSFUNCTION [None]
  - UPPER RESPIRATORY TRACT INFECTION [None]
  - HEARING IMPAIRED [None]
  - COGNITIVE DISORDER [None]
  - SKULL MALFORMATION [None]
  - CLEFT PALATE [None]
  - FINE MOTOR DELAY [None]
  - DRUG EXPOSURE DURING PREGNANCY [None]
  - OTITIS MEDIA [None]
  - SPEECH DISORDER DEVELOPMENTAL [None]
